FAERS Safety Report 13885982 (Version 1)
Quarter: 2017Q3

REPORT INFORMATION
  Report Type: Report from Study
  Country: CZ (occurrence: CZ)
  Receive Date: 20170821
  Receipt Date: 20170821
  Transmission Date: 20171127
  Serious: Yes (Hospitalization)
  Sender: FDA-Public Use
  Company Number: CZ-ROCHE-1821639

PATIENT
  Age: 68 Year
  Sex: Female
  Weight: 81 kg

DRUGS (86)
  1. FURON [Concomitant]
     Active Substance: FUROSEMIDE
     Route: 065
     Dates: start: 20160826, end: 20160828
  2. AMIKACIN [Concomitant]
     Active Substance: AMIKACIN
     Indication: PROPHYLAXIS
     Route: 065
     Dates: start: 20160714, end: 20160719
  3. CETIRIZIN [Concomitant]
     Active Substance: CETIRIZINE HYDROCHLORIDE
     Indication: PREMEDICATION
     Route: 065
     Dates: start: 20160725, end: 20160725
  4. PARACETAMOL [Concomitant]
     Active Substance: ACETAMINOPHEN
     Route: 065
     Dates: start: 20161116, end: 20161116
  5. KALNORMIN [Concomitant]
     Active Substance: POTASSIUM CHLORIDE
     Indication: HYPOKALAEMIA
     Route: 065
     Dates: start: 20160803, end: 20161118
  6. ALERID [Concomitant]
     Active Substance: CETIRIZINE HYDROCHLORIDE
     Indication: PREMEDICATION
     Route: 065
     Dates: start: 20160815, end: 20160815
  7. OMEPRAZOL [Concomitant]
     Active Substance: OMEPRAZOLE
     Indication: NAUSEA
     Route: 065
     Dates: start: 20160824, end: 20160824
  8. COTRIMOXAZOL [Concomitant]
     Active Substance: SULFAMETHOXAZOLE\TRIMETHOPRIM
     Indication: C-REACTIVE PROTEIN INCREASED
     Route: 065
     Dates: start: 20160827, end: 20160902
  9. FLUCONAZOLE. [Concomitant]
     Active Substance: FLUCONAZOLE
     Route: 065
     Dates: start: 20161014, end: 20161020
  10. NUTRIDRINK [Concomitant]
     Indication: NUTRITIONAL SUPPLEMENTATION
     Route: 065
     Dates: start: 20160714, end: 20160719
  11. DEGAN [Concomitant]
     Active Substance: METOCLOPRAMIDE HYDROCHLORIDE
     Route: 065
     Dates: start: 20160725, end: 20160725
  12. FUROSEMID [Concomitant]
     Active Substance: FUROSEMIDE
     Route: 065
     Dates: start: 20160826, end: 20160826
  13. PRENEWEL [Concomitant]
     Active Substance: INDAPAMIDE\PERINDOPRIL ERBUMINE
     Indication: HYPERTENSION
  14. DETRALEX [Concomitant]
     Active Substance: DIOSMIN\HESPERIDIN
     Indication: OEDEMA PERIPHERAL
     Route: 065
     Dates: start: 20160628
  15. ZARZIO [Concomitant]
     Active Substance: FILGRASTIM
     Route: 065
     Dates: start: 20160920, end: 20160923
  16. PARACETAMOL [Concomitant]
     Active Substance: ACETAMINOPHEN
     Route: 065
     Dates: start: 20161005, end: 20161005
  17. PARACETAMOL [Concomitant]
     Active Substance: ACETAMINOPHEN
     Route: 065
     Dates: start: 20161026, end: 20161026
  18. TIROPRAMIDE [Concomitant]
     Active Substance: TIROPRAMIDE
     Indication: NAUSEA
     Route: 065
     Dates: start: 20160803, end: 20160815
  19. SMECTA [Concomitant]
     Active Substance: MONTMORILLONITE
     Indication: DIARRHOEA
     Route: 065
     Dates: start: 20160816, end: 20160817
  20. OMEPRAZOL [Concomitant]
     Active Substance: OMEPRAZOLE
     Route: 065
     Dates: start: 20161005, end: 20161013
  21. BISEPTOL [Concomitant]
     Active Substance: SULFAMETHOXAZOLE\TRIMETHOPRIM
     Indication: PROPHYLAXIS
     Route: 065
     Dates: start: 20160714, end: 20160725
  22. HUMULIN R [Concomitant]
     Active Substance: INSULIN HUMAN
     Indication: HYPERGLYCAEMIA
     Route: 065
     Dates: start: 20160824, end: 20160825
  23. CYCLOPHOSPHAMIDE. [Suspect]
     Active Substance: CYCLOPHOSPHAMIDE
     Indication: B-CELL LYMPHOMA
     Dosage: DATE OF MOST RECENT DOSE PRIOR TO THE EVENT ONSET: 15/AUG/2016 OF 1398 MG WITH UNKNOWN START TIME
     Route: 042
     Dates: start: 20160606
  24. MAXIPIME [Concomitant]
     Active Substance: CEFEPIME HYDROCHLORIDE
     Indication: FEBRILE NEUTROPENIA
  25. KALNORMIN [Concomitant]
     Active Substance: POTASSIUM CHLORIDE
     Route: 065
     Dates: start: 20160725, end: 20161116
  26. KALNORMIN [Concomitant]
     Active Substance: POTASSIUM CHLORIDE
     Route: 065
     Dates: start: 20160825, end: 20160827
  27. HELICID [Concomitant]
     Active Substance: OMEPRAZOLE
     Route: 065
     Dates: start: 20160815, end: 20160819
  28. ENDIARON [Concomitant]
     Indication: DIARRHOEA
     Route: 065
     Dates: start: 20160816, end: 20160817
  29. METOCLOPRAMIDE. [Concomitant]
     Active Substance: METOCLOPRAMIDE
     Route: 065
     Dates: start: 20160829, end: 20160830
  30. AMIODARON [Concomitant]
     Active Substance: AMIODARONE
     Indication: ATRIAL FIBRILLATION
     Route: 065
     Dates: start: 20160826, end: 20160826
  31. PURINOL (CZECH REPUBLIC) [Concomitant]
     Indication: HYPERURICAEMIA
     Route: 065
     Dates: start: 20160715
  32. PROPANORM [Concomitant]
     Active Substance: PROPAFENONE
     Indication: ATRIAL FIBRILLATION
     Route: 065
     Dates: start: 20160826, end: 20160826
  33. LEXAURIN [Concomitant]
     Active Substance: BROMAZEPAM
     Route: 065
     Dates: start: 20160831, end: 20160831
  34. ONDANSETRON [Concomitant]
     Active Substance: ONDANSETRON
     Route: 065
     Dates: start: 20160725, end: 20160725
  35. DOXORUBICIN [Suspect]
     Active Substance: DOXORUBICIN
     Indication: B-CELL LYMPHOMA
     Dosage: DATE OF MOST RECENT DOSE PRIOR TO THE EVENT ONSET: 15/AUG/2016 OF 93 MG WITH UNKNOWN START TIME
     Route: 042
     Dates: start: 20160606
  36. PREDNISONE. [Suspect]
     Active Substance: PREDNISONE
     Indication: B-CELL LYMPHOMA
     Dosage: DATE OF MOST RECENT DOSE PRIOR TO THE EVENT ONSET: 19/AUG/2016 OF 100 MG?DOSE, ROUTE AND FREQUENCY P
     Route: 048
     Dates: start: 20160606
  37. LETROX [Concomitant]
     Active Substance: LEVOTHYROXINE SODIUM
     Indication: HYPOTHYROIDISM
  38. DORETA [Concomitant]
     Active Substance: ACETAMINOPHEN\TRAMADOL HYDROCHLORIDE
     Route: 065
     Dates: start: 20160527
  39. ZARZIO [Concomitant]
     Active Substance: FILGRASTIM
     Route: 065
     Dates: start: 20160731, end: 20160804
  40. PARACETAMOL [Concomitant]
     Active Substance: ACETAMINOPHEN
     Indication: PREMEDICATION
     Route: 065
     Dates: start: 20160725, end: 20160725
  41. PARACETAMOL [Concomitant]
     Active Substance: ACETAMINOPHEN
     Route: 065
     Dates: start: 20160913, end: 20160913
  42. HELICID [Concomitant]
     Active Substance: OMEPRAZOLE
     Route: 065
     Dates: start: 20160913, end: 20160917
  43. FLUCONAZOLE. [Concomitant]
     Active Substance: FLUCONAZOLE
     Indication: ORAL CANDIDIASIS
     Route: 065
     Dates: start: 20160919, end: 20160923
  44. PREDNISON [Concomitant]
     Active Substance: PREDNISONE
     Route: 065
     Dates: start: 20161005, end: 20161013
  45. ENDIARON [Concomitant]
     Indication: DIARRHOEA
     Route: 065
     Dates: start: 20161024, end: 20161024
  46. ZALDIAR [Concomitant]
     Active Substance: ACETAMINOPHEN\TRAMADOL HYDROCHLORIDE
     Indication: ARTHRALGIA
     Route: 065
     Dates: start: 20160824, end: 20160824
  47. PROTHIAZINE [Concomitant]
     Route: 065
     Dates: start: 20160824, end: 20160825
  48. FILGRASTIM [Concomitant]
     Active Substance: FILGRASTIM
     Indication: NEUTROPENIA
     Route: 065
     Dates: start: 20160820, end: 20160823
  49. FRAXIPARINE [Concomitant]
     Active Substance: NADROPARIN CALCIUM
     Indication: THROMBOSIS PROPHYLAXIS
     Route: 065
     Dates: start: 20160527
  50. FURON [Concomitant]
     Active Substance: FUROSEMIDE
     Indication: OEDEMA PERIPHERAL
     Route: 065
     Dates: start: 20160626
  51. ZARZIO [Concomitant]
     Active Substance: FILGRASTIM
     Route: 065
     Dates: start: 20161012, end: 20161013
  52. ZOFRAN [Concomitant]
     Active Substance: ONDANSETRON HYDROCHLORIDE
     Route: 065
     Dates: start: 20161005, end: 20161005
  53. ALERID [Concomitant]
     Active Substance: CETIRIZINE HYDROCHLORIDE
     Route: 065
     Dates: start: 20161116, end: 20161116
  54. HELICID [Concomitant]
     Active Substance: OMEPRAZOLE
     Route: 065
     Dates: start: 20160725, end: 20160729
  55. TANTUM VERDE [Concomitant]
     Active Substance: BENZYDAMINE HYDROCHLORIDE
     Route: 065
     Dates: start: 20161005, end: 20161014
  56. CORSODYL [Concomitant]
     Active Substance: CHLORHEXIDINE GLUCONATE
     Indication: ORAL CANDIDIASIS
     Route: 065
     Dates: start: 20161014, end: 20161024
  57. DEGAN [Concomitant]
     Active Substance: METOCLOPRAMIDE HYDROCHLORIDE
     Route: 065
     Dates: start: 20160815, end: 20160815
  58. RITUXIMAB. [Suspect]
     Active Substance: RITUXIMAB
     Indication: B-CELL LYMPHOMA
     Dosage: DATE OF MOST RECENT DOSE PRIOR TO THE EVENT ONSET: 15/AUG/2016 OF 699 MG?DOSE PER PROTOCOL
     Route: 042
     Dates: start: 20160606
  59. VINCRISTINE [Suspect]
     Active Substance: VINCRISTINE
     Indication: B-CELL LYMPHOMA
     Dosage: DATE OF MOST RECENT DOSE PRIOR TO THE EVENT ONST: 15/AUG/2016 OF 2 MG WITH AN UNKNOWN START TIME?CAP
     Route: 050
     Dates: start: 20160606
  60. KINITO [Concomitant]
     Route: 065
     Dates: start: 20160803, end: 20160815
  61. ZARZIO [Concomitant]
     Active Substance: FILGRASTIM
     Route: 065
     Dates: start: 20160820, end: 20160825
  62. PARACETAMOL [Concomitant]
     Active Substance: ACETAMINOPHEN
     Route: 065
     Dates: start: 20160815, end: 20160815
  63. ZOFRAN [Concomitant]
     Active Substance: ONDANSETRON HYDROCHLORIDE
     Route: 065
     Dates: start: 20160815, end: 20160815
  64. METOCLOPRAMIDE. [Concomitant]
     Active Substance: METOCLOPRAMIDE
     Indication: NAUSEA
     Route: 065
     Dates: start: 20160824, end: 20160824
  65. NUTRIDRINK [Concomitant]
     Route: 065
     Dates: start: 20160824, end: 20160901
  66. KALIUM CHLORATUM [Concomitant]
     Active Substance: POTASSIUM CHLORIDE
     Indication: HYPOKALAEMIA
     Route: 042
     Dates: start: 20160824, end: 20160825
  67. VENETOCLAX. [Suspect]
     Active Substance: VENETOCLAX
     Indication: B-CELL LYMPHOMA
     Dosage: DATE OF MOST RECENT DOSE PRIOR TO THE EVENT ONSET: 16/AUG/2016 OF 400 MG
     Route: 048
     Dates: start: 20160609
  68. BETALOC SR [Concomitant]
     Indication: HYPERTENSION
     Route: 065
     Dates: end: 20160901
  69. MILURIT [Concomitant]
     Active Substance: ALLOPURINOL
     Indication: HYPERURICAEMIA
     Route: 065
     Dates: start: 20160713, end: 20161005
  70. MILURIT [Concomitant]
     Active Substance: ALLOPURINOL
     Route: 065
     Dates: start: 20161014
  71. MAXIPIME [Concomitant]
     Active Substance: CEFEPIME HYDROCHLORIDE
     Indication: STOMATITIS
     Route: 065
     Dates: start: 20160714, end: 20160719
  72. ZARZIO [Concomitant]
     Active Substance: FILGRASTIM
     Indication: NEUTROPENIA
     Route: 065
     Dates: start: 20160730, end: 20160802
  73. NOVALGIN (CZECH REPUBLIC) [Concomitant]
     Route: 065
     Dates: start: 20160824, end: 20160825
  74. METOPROLOL. [Concomitant]
     Active Substance: METOPROLOL
     Indication: ATRIAL FIBRILLATION
     Dosage: RETARD
     Route: 065
     Dates: start: 20160615
  75. DIFLUCAN [Concomitant]
     Active Substance: FLUCONAZOLE
     Indication: MUCOSAL INFLAMMATION
     Route: 065
     Dates: start: 20160613, end: 20160719
  76. KINITO [Concomitant]
     Indication: NAUSEA
     Route: 065
     Dates: start: 20160803, end: 20160805
  77. ZARZIO [Concomitant]
     Active Substance: FILGRASTIM
     Indication: FEBRILE NEUTROPENIA
     Route: 065
     Dates: start: 20160824, end: 20160824
  78. SOLU-MEDROL [Concomitant]
     Active Substance: METHYLPREDNISOLONE SODIUM SUCCINATE
     Indication: PREMEDICATION
     Route: 065
     Dates: start: 20160725, end: 20160725
  79. ZOFRAN [Concomitant]
     Active Substance: ONDANSETRON HYDROCHLORIDE
     Indication: VOMITING
     Route: 065
     Dates: start: 20160725, end: 20160725
  80. ZOFRAN [Concomitant]
     Active Substance: ONDANSETRON HYDROCHLORIDE
     Route: 065
     Dates: start: 20160913, end: 20160913
  81. SMECTA [Concomitant]
     Active Substance: MONTMORILLONITE
     Route: 065
     Dates: start: 20161024, end: 20161024
  82. CETIXIN [Concomitant]
     Indication: PREMEDICATION
     Route: 065
     Dates: start: 20160913, end: 20160913
  83. CETIXIN [Concomitant]
     Route: 065
     Dates: start: 20161005, end: 20161005
  84. BISEPTOL [Concomitant]
     Active Substance: SULFAMETHOXAZOLE\TRIMETHOPRIM
     Route: 065
     Dates: start: 20160827, end: 20160902
  85. FILGRASTIM [Concomitant]
     Active Substance: FILGRASTIM
     Route: 065
     Dates: start: 20160731, end: 20160804
  86. EGILOK SUCC [Concomitant]
     Indication: HYPERTENSION
     Route: 065
     Dates: start: 20160901

REACTIONS (1)
  - Dehydration [Recovered/Resolved]

NARRATIVE: CASE EVENT DATE: 20160818
